FAERS Safety Report 13771516 (Version 5)
Quarter: 2019Q2

REPORT INFORMATION
  Report Type: Spontaneous
  Country: PL (occurrence: PL)
  Receive Date: 20170720
  Receipt Date: 20190403
  Transmission Date: 20190711
  Serious: Yes (Life-Threatening, Hospitalization, Other)
  Sender: FDA-Public Use
  Company Number: PL-ACCORD-053712

PATIENT
  Age: 62 Year
  Sex: Female
  Weight: 137 kg

DRUGS (7)
  1. GINKGO BILOBA [Concomitant]
     Active Substance: GINKGO
  2. VENLAFAXINE [Interacting]
     Active Substance: VENLAFAXINE HYDROCHLORIDE
     Indication: DEPRESSION
     Dosage: 150 MG IN THE MORNING, IN THE AFTERNOON
     Route: 048
  3. WARFARIN [Concomitant]
     Active Substance: WARFARIN
  4. MOKLAR [Interacting]
     Active Substance: MOCLOBEMIDE
     Indication: DEPRESSION
     Dosage: 150 MG, IN AFTERNOON
     Route: 048
  5. ZOLPIDEM [Interacting]
     Active Substance: ZOLPIDEM\ZOLPIDEM TARTRATE
     Indication: INSOMNIA
     Dosage: 10 MG, AT BEDTIME
     Route: 048
  6. SERTRALINE [Suspect]
     Active Substance: SERTRALINE HYDROCHLORIDE
     Indication: DEPRESSION
     Dosage: 50 MG, AT NIGHT
     Route: 048
  7. SOTALOL. [Concomitant]
     Active Substance: SOTALOL

REACTIONS (11)
  - Electrocardiogram QT prolonged [Recovered/Resolved]
  - Ischaemic stroke [Unknown]
  - Fatigue [Unknown]
  - Syncope [Recovered/Resolved]
  - Tachycardia [Recovered/Resolved]
  - Apallic syndrome [Unknown]
  - Drug ineffective [Unknown]
  - Contraindicated product administered [Unknown]
  - Cardiac disorder [Unknown]
  - Insomnia [Recovered/Resolved]
  - Drug interaction [Unknown]
